FAERS Safety Report 9178984 (Version 1)
Quarter: 2012Q4

REPORT INFORMATION
  Report Type: Report from Study
  Country: PL (occurrence: PL)
  Receive Date: 20121029
  Receipt Date: 20121029
  Transmission Date: 20130627
  Serious: Yes (Other)
  Sender: FDA-Public Use
  Company Number: PL-ROCHE-1147242

PATIENT
  Age: 49 None
  Sex: Male

DRUGS (2)
  1. PEG-INTERFERON ALFA 2A [Suspect]
     Indication: HEPATITIS C
     Route: 058
     Dates: start: 20100916
  2. RIBAVIRIN [Suspect]
     Indication: HEPATITIS C
     Route: 048
     Dates: start: 20100916

REACTIONS (4)
  - Asthenia [Recovered/Resolved]
  - Leukopenia [Recovered/Resolved]
  - Weight decreased [Recovered/Resolved]
  - Musculoskeletal pain [Recovered/Resolved]
